FAERS Safety Report 6760544-4 (Version None)
Quarter: 2010Q2

REPORT INFORMATION
  Report Type: 
  Country: None (occurrence: None)
  Receive Date: 20100607
  Receipt Date: 20100607
  Transmission Date: 20101027
  Serious: No
  Sender: FDA-Public Use
  Company Number: None

PATIENT

DRUGS (1)
  1. FLEET PHOSPHO-SODA COLONOSCOPY PREP [Suspect]

REACTIONS (7)
  - COLITIS ISCHAEMIC [None]
  - DRUG HYPERSENSITIVITY [None]
  - DYSPEPSIA [None]
  - MALAISE [None]
  - PANCREATITIS [None]
  - PRODUCT QUALITY ISSUE [None]
  - RENAL DISORDER [None]
